FAERS Safety Report 8519083 (Version 3)
Quarter: 2013Q4

REPORT INFORMATION
  Report Type: Spontaneous
  Country: US (occurrence: US)
  Receive Date: 20120418
  Receipt Date: 20131226
  Transmission Date: 20140711
  Serious: Yes (Hospitalization)
  Sender: FDA-Public Use
  Company Number: US-BAYER-2012-035546

PATIENT
  Age: 20 Year
  Sex: Female
  Weight: 73 kg

DRUGS (4)
  1. YAZ [Suspect]
     Indication: PREMENSTRUAL DYSPHORIC DISORDER
     Dosage: UNK
     Dates: start: 2006, end: 201201
  2. YAZ [Suspect]
     Indication: PREMENSTRUAL SYNDROME
  3. YAZ [Suspect]
     Indication: DYSMENORRHOEA
  4. OMEPRAZOLE [Concomitant]
     Dosage: 20 MG, UNK
     Dates: start: 20100204, end: 20101027

REACTIONS (8)
  - Gallbladder disorder [None]
  - Cholecystitis acute [None]
  - Abdominal pain [None]
  - Middle insomnia [None]
  - Injury [None]
  - Pain [None]
  - Emotional distress [None]
  - Off label use [None]
